FAERS Safety Report 25269701 (Version 2)
Quarter: 2025Q2

REPORT INFORMATION
  Report Type: Report from Study
  Country: US (occurrence: US)
  Receive Date: 20250505
  Receipt Date: 20250530
  Transmission Date: 20250717
  Serious: Yes (Other)
  Sender: ALEXION PHARMACEUTICALS
  Company Number: US-AstraZeneca-CH-00851844A

PATIENT
  Age: 71 Year

DRUGS (5)
  1. TEZEPELUMAB [Suspect]
     Active Substance: TEZEPELUMAB
     Indication: Asthma
  2. TEZEPELUMAB [Suspect]
     Active Substance: TEZEPELUMAB
  3. TAGRISSO [Suspect]
     Active Substance: OSIMERTINIB
     Route: 065
  4. BUDESONIDE [Suspect]
     Active Substance: BUDESONIDE
     Route: 065
  5. OMEPRAZOLE [Suspect]
     Active Substance: OMEPRAZOLE
     Route: 065

REACTIONS (7)
  - Lung neoplasm malignant [Recovering/Resolving]
  - Upper-airway cough syndrome [Recovering/Resolving]
  - Respiratory syncytial virus infection [Recovering/Resolving]
  - Headache [Recovering/Resolving]
  - Asthma [Recovering/Resolving]
  - Viral infection [Unknown]
  - Nasal discomfort [Recovering/Resolving]
